FAERS Safety Report 7094032-5 (Version None)
Quarter: 2010Q4

REPORT INFORMATION
  Report Type: 
  Country: None (occurrence: None)
  Receive Date: 20101110
  Receipt Date: 20101101
  Transmission Date: 20110411
  Serious: Yes (Hospitalization)
  Sender: FDA-Public Use
  Company Number: JP-ABBOTT-10P-087-0677125-00

PATIENT
  Age: 69 Year
  Sex: Male

DRUGS (12)
  1. LEUPROLIDE ACETATE [Suspect]
     Indication: PROSTATE CANCER METASTATIC
     Route: 058
     Dates: start: 20051201
  2. DOCETAXEL [Suspect]
     Indication: PROSTATE CANCER METASTATIC
     Route: 041
     Dates: start: 20081106, end: 20091116
  3. ZOMETA [Suspect]
     Indication: METASTASES TO BONE
     Route: 041
     Dates: start: 20081110
  4. LANSOPRAZOLE [Concomitant]
     Indication: GASTRIC ULCER
     Route: 048
     Dates: start: 20090130
  5. BROTIZOLAM [Concomitant]
     Indication: INSOMNIA
     Route: 048
     Dates: start: 20090130
  6. CALCIUM LACTATE [Concomitant]
     Indication: HYPOCALCAEMIA
     Route: 048
  7. MAGNESIUM OXIDE [Concomitant]
     Indication: CONSTIPATION
     Route: 048
  8. DECADRON [Concomitant]
     Indication: PROSTATE CANCER METASTATIC
     Route: 048
     Dates: start: 20100325
  9. FENTANYL [Concomitant]
     Indication: CANCER PAIN
     Dosage: PATCH
     Route: 062
     Dates: start: 20080717
  10. CASODEX [Concomitant]
     Indication: PROSTATE CANCER METASTATIC
     Route: 048
     Dates: start: 20081201
  11. ODYNE [Concomitant]
     Indication: PROSTATE CANCER METASTATIC
     Route: 048
  12. MORPHINE [Concomitant]
     Indication: PAIN IN EXTREMITY
     Route: 065
     Dates: start: 20080424

REACTIONS (4)
  - DYSPNOEA [None]
  - MALAISE [None]
  - PLEURAL EFFUSION [None]
  - PNEUMOTHORAX [None]
